FAERS Safety Report 11132464 (Version 1)
Quarter: 2015Q2

REPORT INFORMATION
  Report Type: Spontaneous
  Country: IN (occurrence: IN)
  Receive Date: 20150522
  Receipt Date: 20150522
  Transmission Date: 20150821
  Serious: Yes (Hospitalization)
  Sender: FDA-Public Use
  Company Number: IN-ASTRAZENECA-2015SE45923

PATIENT
  Age: 67 Year
  Sex: Male

DRUGS (4)
  1. ANTIHYPERTENSIVE MEDICATION [Concomitant]
     Indication: HYPERTENSION
  2. ROSUVASTATIN [Suspect]
     Active Substance: ROSUVASTATIN
     Route: 048
  3. ORAL HYPOGLYCEMIC MEDICATION [Concomitant]
     Indication: HYPERGLYCAEMIA
  4. ANTIPLATELET MEDICATION [Concomitant]
     Indication: PLATELET AGGREGATION

REACTIONS (2)
  - Quadriparesis [Recovered/Resolved]
  - Rhabdomyolysis [Recovered/Resolved]
